FAERS Safety Report 7292951-8 (Version None)
Quarter: 2011Q1

REPORT INFORMATION
  Report Type: 
  Country: None (occurrence: None)
  Receive Date: 20110215
  Receipt Date: 20110204
  Transmission Date: 20110831
  Serious: Yes (Hospitalization)
  Sender: FDA-Public Use
  Company Number: US-JNJFOC-20101101197

PATIENT
  Sex: Male
  Weight: 122.47 kg

DRUGS (4)
  1. REMICADE [Suspect]
     Indication: ANKYLOSING SPONDYLITIS
     Route: 042
  2. REMICADE [Suspect]
     Indication: PSORIATIC ARTHROPATHY
     Route: 042
  3. PREDNISONE [Concomitant]
     Route: 048
  4. METHOTREXATE [Concomitant]
     Route: 048

REACTIONS (6)
  - LUNG INFILTRATION [None]
  - ATRIAL FIBRILLATION [None]
  - SEPSIS [None]
  - VIRAL INFECTION [None]
  - DERMAL CYST [None]
  - VIRAL PERICARDITIS [None]
